FAERS Safety Report 7409087-5 (Version None)
Quarter: 2011Q2

REPORT INFORMATION
  Report Type: 
  Country: None (occurrence: None)
  Receive Date: 20110412
  Receipt Date: 20110401
  Transmission Date: 20111010
  Serious: Yes (Other)
  Sender: FDA-Public Use
  Company Number: BE-SANOFI-AVENTIS-2011SA020053

PATIENT
  Age: 56 Year
  Sex: Male

DRUGS (10)
  1. METFORMAX [Concomitant]
  2. PROPRANOLOL HYDROCHLORIDE [Concomitant]
  3. TRAZOLAN [Concomitant]
  4. INSULIN GLARGINE [Suspect]
     Route: 058
     Dates: start: 20110201, end: 20110328
  5. APIDRA [Suspect]
     Indication: TYPE 2 DIABETES MELLITUS
  6. NEXIUM [Concomitant]
  7. COAPROVEL [Concomitant]
  8. FORADIL [Concomitant]
  9. CHANTIX [Concomitant]
  10. INEGY [Concomitant]

REACTIONS (4)
  - PLEURAL EFFUSION [None]
  - DYSPNOEA [None]
  - OEDEMA PERIPHERAL [None]
  - PULMONARY OEDEMA [None]
